FAERS Safety Report 6580391-6 (Version None)
Quarter: 2010Q1

REPORT INFORMATION
  Report Type: 
  Country: None (occurrence: None)
  Receive Date: 20100212
  Receipt Date: 20100203
  Transmission Date: 20100710
  Serious: Yes (Other)
  Sender: FDA-Public Use
  Company Number: PHHY2010GR04921

PATIENT
  Age: 22 Year
  Sex: Female

DRUGS (3)
  1. COMBIPATCH [Suspect]
     Indication: GALACTOSAEMIA
     Dosage: 50 UNITS
     Route: 062
     Dates: end: 20090523
  2. COMBIPATCH [Suspect]
     Dosage: 25 UNITS
     Route: 062
     Dates: start: 20090917
  3. COMBIPATCH [Suspect]
     Dosage: 50 UNITS
     Route: 062
     Dates: start: 20100127

REACTIONS (3)
  - AMENORRHOEA [None]
  - AMNESIA [None]
  - EPILEPSY [None]
